FAERS Safety Report 6156998-7 (Version None)
Quarter: 2009Q2

REPORT INFORMATION
  Report Type: 
  Country: None (occurrence: None)
  Receive Date: 20090416
  Receipt Date: 20090401
  Transmission Date: 20091009
  Serious: Yes (Hospitalization)
  Sender: FDA-Public Use
  Company Number: FR-GENENTECH-275760

PATIENT
  Sex: Male

DRUGS (8)
  1. MABTHERA [Suspect]
     Indication: NON-HODGKIN'S LYMPHOMA
     Dosage: 375 MG/M2, Q3M
     Route: 042
     Dates: start: 20080616
  2. MABTHERA [Suspect]
     Dosage: 650 MG, UNK
     Dates: start: 20080908
  3. NEBILOX [Concomitant]
     Indication: DRUG USE FOR UNKNOWN INDICATION
  4. PRETERAX [Concomitant]
     Indication: DRUG USE FOR UNKNOWN INDICATION
  5. PRAVASTATIN [Concomitant]
     Indication: DRUG USE FOR UNKNOWN INDICATION
  6. METFORMIN HCL [Concomitant]
     Indication: DRUG USE FOR UNKNOWN INDICATION
  7. PIOGLITAZONE [Concomitant]
     Indication: DRUG USE FOR UNKNOWN INDICATION
  8. PLAVIX [Concomitant]
     Indication: DRUG USE FOR UNKNOWN INDICATION

REACTIONS (1)
  - REVERSIBLE POSTERIOR LEUKOENCEPHALOPATHY SYNDROME [None]
